FAERS Safety Report 6376098-0 (Version None)
Quarter: 2009Q3

REPORT INFORMATION
  Report Type: 
  Country: None (occurrence: None)
  Receive Date: 20090921
  Receipt Date: 20090908
  Transmission Date: 20100115
  Serious: Yes (Life-Threatening)
  Sender: FDA-Public Use
  Company Number: 2009AL005954

PATIENT
  Age: 59 Year
  Sex: Male

DRUGS (7)
  1. FLUDARABINE PHOSPHATE [Suspect]
  2. ETOPOSIDE [Concomitant]
  3. DAUNORUBICIN HCL [Concomitant]
  4. ARA-C [Concomitant]
  5. CYTARABINE [Concomitant]
  6. IDARUBICIN HCL [Concomitant]
  7. LENOGRASTIM [Concomitant]

REACTIONS (3)
  - CLOSTRIDIAL INFECTION [None]
  - COLITIS [None]
  - RENAL FAILURE ACUTE [None]
